FAERS Safety Report 16570930 (Version 1)
Quarter: 2019Q3

REPORT INFORMATION
  Report Type: Spontaneous
  Country: US (occurrence: US)
  Receive Date: 20190715
  Receipt Date: 20190715
  Transmission Date: 20191004
  Serious: No
  Sender: FDA-Public Use
  Company Number: US-VERTEX PHARMACEUTICALS-2019-006453

PATIENT
  Age: 6 Year
  Sex: Male

DRUGS (1)
  1. KALYDECO [Suspect]
     Active Substance: IVACAFTOR
     Indication: CYSTIC FIBROSIS
     Dosage: 75 MG, BID
     Route: 048
     Dates: start: 20171108

REACTIONS (4)
  - Erythema [Unknown]
  - Skin warm [Unknown]
  - Headache [Unknown]
  - Body temperature increased [Unknown]

NARRATIVE: CASE EVENT DATE: 20190608
